FAERS Safety Report 4375440-X (Version None)
Quarter: 2004Q2

REPORT INFORMATION
  Report Type: 
  Country: None (occurrence: None)
  Receive Date: 20040527
  Receipt Date: 20040524
  Transmission Date: 20050107
  Serious: Yes (Hospitalization)
  Sender: FDA-Public Use
  Company Number: 200410096BBE

PATIENT
  Age: 53 Year
  Sex: Male

DRUGS (1)
  1. GAMIMUNE N 10% [Suspect]
     Indication: IMMUNODEFICIENCY COMMON VARIABLE
     Dosage: INTRAVENOUS
     Route: 042

REACTIONS (1)
  - CEREBROVASCULAR ACCIDENT [None]
